FAERS Safety Report 16326251 (Version 2)
Quarter: 2019Q2

REPORT INFORMATION
  Report Type: Spontaneous
  Country: US (occurrence: US)
  Receive Date: 20190517
  Receipt Date: 20190523
  Transmission Date: 20190711
  Serious: Yes (Death, Life-Threatening, Hospitalization, Other)
  Sender: FDA-Public Use
  Company Number: US-PFIZER INC-2019205895

PATIENT
  Age: 37 Year
  Sex: Female

DRUGS (1)
  1. BENZONATATE. [Suspect]
     Active Substance: BENZONATATE
     Dosage: INGESTED LESS THAN 30 PILLS OF BENZONATATE 200 MG CAPSULES
     Route: 048

REACTIONS (5)
  - Seizure [Unknown]
  - Brain injury [Fatal]
  - Acidosis [Unknown]
  - Overdose [Unknown]
  - Cardiac arrest [Unknown]
